FAERS Safety Report 16047040 (Version 2)
Quarter: 2019Q1

REPORT INFORMATION
  Report Type: Spontaneous
  Country: PT (occurrence: FR)
  Receive Date: 20190307
  Receipt Date: 20190329
  Transmission Date: 20190418
  Serious: Yes (Other)
  Sender: FDA-Public Use
  Company Number: PT-SUNOVION-2019SUN000914

PATIENT

DRUGS (2)
  1. ZEBINIX [Suspect]
     Active Substance: ESLICARBAZEPINE ACETATE
     Indication: PRODUCT USED FOR UNKNOWN INDICATION
     Dosage: 400 MG, QD
     Route: 048
     Dates: start: 20190122, end: 201901
  2. ZEBINIX [Suspect]
     Active Substance: ESLICARBAZEPINE ACETATE
     Dosage: 800 MG, QD
     Route: 048
     Dates: start: 201901, end: 20190215

REACTIONS (6)
  - Lymphopenia [Recovered/Resolved]
  - Headache [Unknown]
  - Cholestasis [Unknown]
  - Somnolence [Unknown]
  - Cell death [Unknown]
  - Nausea [Unknown]

NARRATIVE: CASE EVENT DATE: 2019
